FAERS Safety Report 16767720 (Version 1)
Quarter: 2019Q3

REPORT INFORMATION
  Report Type: Other
  Country: CN (occurrence: CN)
  Receive Date: 20190903
  Receipt Date: 20190903
  Transmission Date: 20191005
  Serious: Yes (Hospitalization)
  Sender: FDA-Public Use
  Company Number: CN-B.BRAUN MEDICAL INC.-2073951

PATIENT
  Age: 33 Year
  Sex: Female

DRUGS (3)
  1. BUPIVACAINE HYDROCHLORIDE WITH DEXTROSE [Suspect]
     Active Substance: BUPIVACAINE HYDROCHLORIDE
     Indication: PAIN
     Route: 037
  2. FENTANYL. [Concomitant]
     Active Substance: FENTANYL
     Route: 037
  3. OXYTOCIN. [Concomitant]
     Active Substance: OXYTOCIN
     Route: 042

REACTIONS (3)
  - Uterine hypertonus [None]
  - Caesarean section [None]
  - Bradycardia foetal [None]
